FAERS Safety Report 4321886-5 (Version None)
Quarter: 2004Q1

REPORT INFORMATION
  Report Type: 
  Country: None (occurrence: None)
  Receive Date: 20040322
  Receipt Date: 20040121
  Transmission Date: 20041129
  Serious: No
  Sender: FDA-Public Use
  Company Number: A-US2004-04342

PATIENT
  Age: 66 Year
  Sex: Male

DRUGS (9)
  1. TRACLEER [Suspect]
     Indication: PULMONARY HYPERTENSION
     Dosage: 125 MG ; 62.5 MG:  BID, ORAL
     Route: 048
     Dates: start: 20030801, end: 20030901
  2. TRACLEER [Suspect]
     Indication: PULMONARY HYPERTENSION
     Dosage: 125 MG ; 62.5 MG:  BID, ORAL
     Route: 048
     Dates: start: 20030901
  3. LASIX [Concomitant]
  4. NORVASC [Concomitant]
  5. DIGOXIN [Concomitant]
  6. COLCHICINE (COLCHICINE) [Concomitant]
  7. PROBENECID [Concomitant]
  8. ALBUTEROL [Concomitant]
  9. PULMICORT [Concomitant]

REACTIONS (1)
  - OEDEMA PERIPHERAL [None]
